FAERS Safety Report 23538864 (Version 2)
Quarter: 2024Q2

REPORT INFORMATION
  Report Type: Spontaneous
  Country: JP (occurrence: JP)
  Receive Date: 20240219
  Receipt Date: 20240520
  Transmission Date: 20240716
  Serious: Yes (Other)
  Sender: FDA-Public Use
  Company Number: JP-ONO-2024JP003136

PATIENT
  Age: 74 Year
  Sex: Male

DRUGS (2)
  1. OPDIVO [Suspect]
     Active Substance: NIVOLUMAB
     Indication: Gastric cancer
     Route: 041
  2. INSULIN NOS [Concomitant]
     Active Substance: INSULIN NOS
     Indication: Pancreatogenous diabetes

REACTIONS (2)
  - Fulminant type 1 diabetes mellitus [Unknown]
  - Adrenocorticotropic hormone deficiency [Recovering/Resolving]
